FAERS Safety Report 9563839 (Version 1)
Quarter: 2013Q3

REPORT INFORMATION
  Report Type: Spontaneous
  Country: US (occurrence: None)
  Receive Date: 20130926
  Receipt Date: 20130926
  Transmission Date: 20140515
  Serious: No
  Sender: FDA-Public Use
  Company Number: None

PATIENT
  Age: 43 Year
  Sex: Female

DRUGS (2)
  1. LEVAQUIN [Suspect]
     Indication: LYME DISEASE
     Dosage: ONE, ONCE DAILY, TAKEN BY MOUTH
     Route: 048
  2. CIPRO [Suspect]

REACTIONS (5)
  - Rash erythematous [None]
  - Burning sensation [None]
  - Visual impairment [None]
  - Vision blurred [None]
  - Temperature intolerance [None]
